FAERS Safety Report 6151282-X (Version None)
Quarter: 2009Q2

REPORT INFORMATION
  Report Type: 
  Country: None (occurrence: None)
  Receive Date: 20090410
  Receipt Date: 20090331
  Transmission Date: 20091009
  Serious: Yes (Other)
  Sender: FDA-Public Use
  Company Number: DE-RANBAXY-2009RR-21994

PATIENT
  Age: 24 Year
  Sex: Male
  Weight: 74 kg

DRUGS (7)
  1. LAMIVUDINE [Suspect]
     Indication: HIV INFECTION
  2. EFAVIRENZ [Suspect]
     Indication: HIV INFECTION
  3. ZIDOVUDINE [Suspect]
     Indication: HIV INFECTION
  4. FLUCONAZOLE [Suspect]
     Indication: ENCEPHALITIS
     Dosage: 400 MG, QD
     Route: 042
  5. AMPHOTERICIN B [Concomitant]
     Indication: ENCEPHALITIS
     Dosage: 35 MG, QD
  6. FLUCYTOSINE [Concomitant]
     Indication: ENCEPHALITIS
     Dosage: 10 G, QD
  7. VORICONAZOLE [Concomitant]

REACTIONS (2)
  - DRUG RESISTANCE [None]
  - IMMUNE RECONSTITUTION SYNDROME [None]
